FAERS Safety Report 7799121-5 (Version None)
Quarter: 2011Q4

REPORT INFORMATION
  Report Type: 
  Country: None (occurrence: None)
  Receive Date: 20111006
  Receipt Date: 20110929
  Transmission Date: 20120403
  Serious: Yes (Death, Life-Threatening)
  Sender: FDA-Public Use
  Company Number: JP-PFIZER INC-2011121221

PATIENT
  Age: 64 Year
  Sex: Male

DRUGS (3)
  1. POLARAMINE [Concomitant]
     Indication: PROPHYLAXIS
     Dosage: 5 MG, WEEKLY
     Route: 042
     Dates: start: 20110112, end: 20110121
  2. TEMSIROLIMUS [Suspect]
     Indication: METASTATIC RENAL CELL CARCINOMA
     Dosage: 25 MG, WEEKLY
     Route: 042
     Dates: start: 20110113, end: 20110120
  3. CODEINE PHOSPHATE [Concomitant]
     Indication: RENAL CELL CARCINOMA
     Dosage: 2 G, 3X/DAY
     Route: 048
     Dates: start: 20100930

REACTIONS (2)
  - RENAL FAILURE CHRONIC [None]
  - CLOSTRIDIUM DIFFICILE COLITIS [None]
